FAERS Safety Report 8842165 (Version 2)
Quarter: 2012Q4

REPORT INFORMATION
  Report Type: 
  Country: JP (occurrence: JP)
  Receive Date: 20121016
  Receipt Date: 20121031
  Transmission Date: 20130627
  Serious: Yes (Hospitalization, Other)
  Sender: FDA-Public Use
  Company Number: PHHY2012JP091311

PATIENT
  Age: 16 Year
  Sex: Female
  Weight: 45 kg

DRUGS (3)
  1. TEGRETOL [Suspect]
     Indication: EPILEPSY
     Dosage: 500 mg, in two doses per day
     Route: 048
     Dates: start: 199908
  2. TEGRETOL [Interacting]
     Dosage: 50 mg, in two doses daily
     Route: 048
     Dates: start: 20121016
  3. CHOCOLA BB [Interacting]
     Route: 048

REACTIONS (13)
  - Status epilepticus [Not Recovered/Not Resolved]
  - Tonic convulsion [Unknown]
  - Altered state of consciousness [Not Recovered/Not Resolved]
  - Vomiting [Unknown]
  - Toxicity to various agents [Unknown]
  - Ataxia [Unknown]
  - Tachycardia [Unknown]
  - Muscular weakness [Unknown]
  - Anticonvulsant drug level increased [Recovering/Resolving]
  - Movement disorder [Recovering/Resolving]
  - Communication disorder [Unknown]
  - Eating disorder [Unknown]
  - Drug interaction [Unknown]
